FAERS Safety Report 8930081 (Version 1)
Quarter: 2012Q4

REPORT INFORMATION
  Report Type: Report from Study
  Country: US (occurrence: US)
  Receive Date: 20121128
  Receipt Date: 20121128
  Transmission Date: 20130627
  Serious: Yes (Life-Threatening, Hospitalization, Other)
  Sender: FDA-Public Use
  Company Number: US-TEVA-372348USA

PATIENT
  Age: 38 Year
  Sex: Female
  Weight: 86.2 kg

DRUGS (14)
  1. BLEOMYCIN [Suspect]
     Indication: HODGKIN^S DISEASE
     Dosage: DAY 1 AND DAY 15 OF 28 DAY CYCLE
     Route: 042
     Dates: start: 20110323
  2. BEVACIZUMAB [Suspect]
     Indication: HODGKIN^S DISEASE
     Dosage: 1 AND 15 OF 28 DAY CYCLE
     Route: 042
     Dates: start: 20101228
  3. VINBLASTINE [Suspect]
     Indication: HODGKIN^S DISEASE
     Dosage: DAY1 AND 15 OF 28 DAY CYCLE
     Route: 042
     Dates: start: 20110323
  4. DACARBAZINE [Suspect]
     Indication: HODGKIN^S DISEASE
     Dosage: DAYS 1 AND 15 OF 28 DAY CYCLE
     Route: 042
     Dates: start: 20110323
  5. DOXORUBICIN [Suspect]
     Indication: HODGKIN^S DISEASE
     Dosage: DAYS 1 AND 15 OF 28 BAY CYCLE
     Route: 042
     Dates: start: 20110323
  6. PRISTIQ [Concomitant]
     Route: 048
  7. LAMICTAL [Concomitant]
     Route: 048
  8. ATIVAN [Concomitant]
     Dosage: AS PER NEED.
     Route: 048
  9. ADVIL [Concomitant]
     Dosage: AS NEEDED
     Route: 048
  10. ZYPREXA [Concomitant]
     Route: 048
  11. DECADRON [Concomitant]
     Dosage: AS NEEDED.
     Route: 048
  12. ZOFRAN [Concomitant]
     Dosage: AS NEEDED.
     Route: 048
  13. DEXAMETHASONE [Concomitant]
  14. BACTRIM [Concomitant]

REACTIONS (2)
  - Respiratory distress [Recovered/Resolved]
  - Febrile neutropenia [Recovered/Resolved]
